FAERS Safety Report 9420659 (Version 3)
Quarter: 2013Q4

REPORT INFORMATION
  Report Type: Spontaneous
  Country: US (occurrence: US)
  Receive Date: 20130725
  Receipt Date: 20131129
  Transmission Date: 20140711
  Serious: Yes (Other)
  Sender: FDA-Public Use
  Company Number: PHEH2013US015667

PATIENT
  Age: 53 Year
  Sex: Female
  Weight: 57.6 kg

DRUGS (3)
  1. RECLAST [Suspect]
     Indication: OSTEOPOROSIS POSTMENOPAUSAL
     Dosage: 5 MG / 100ML/YEARLY
     Route: 042
     Dates: start: 20130709
  2. VITAMIN D2 [Concomitant]
     Indication: VITAMIN D DEFICIENCY
     Dosage: 50000 UNITS, UNK
     Route: 048
     Dates: start: 20130509
  3. DELZICOL [Concomitant]
     Indication: COLITIS ULCERATIVE
     Dosage: 400 MG, BID
     Dates: start: 20130509

REACTIONS (2)
  - Hepatitis acute [Recovering/Resolving]
  - Chest pain [Unknown]
